FAERS Safety Report 6905718-4 (Version None)
Quarter: 2010Q3

REPORT INFORMATION
  Report Type: 
  Country: None (occurrence: None)
  Receive Date: 20100804
  Receipt Date: 20100726
  Transmission Date: 20110219
  Serious: Yes (Hospitalization, Other)
  Sender: FDA-Public Use
  Company Number: US-ASTRAZENECA-2010SE34739

PATIENT
  Age: 65 Year
  Sex: Female
  Weight: 74.8 kg

DRUGS (10)
  1. CRESTOR [Suspect]
     Indication: BLOOD CHOLESTEROL INCREASED
     Route: 048
     Dates: start: 20071201, end: 20100625
  2. CRESTOR [Suspect]
     Route: 048
     Dates: start: 20100626
  3. PLAVIX [Concomitant]
  4. METFORMIN HCL [Concomitant]
  5. DIOVAN [Concomitant]
  6. CYMBALTA [Concomitant]
  7. TRICOR [Concomitant]
  8. ASPIRIN [Concomitant]
  9. SKELAXIN [Concomitant]
  10. XANAX [Concomitant]

REACTIONS (4)
  - CEREBROVASCULAR ACCIDENT [None]
  - GAIT DISTURBANCE [None]
  - MYOCARDIAL INFARCTION [None]
  - NEURALGIA [None]
